FAERS Safety Report 7267894-6 (Version None)
Quarter: 2011Q1

REPORT INFORMATION
  Report Type: 
  Country: None (occurrence: None)
  Receive Date: 20110201
  Receipt Date: 20110128
  Transmission Date: 20110831
  Serious: Yes (Hospitalization)
  Sender: FDA-Public Use
  Company Number: GB-ABBOTT-11P-167-0701076-00

PATIENT
  Sex: Male

DRUGS (3)
  1. CLARITHROMYCIN [Suspect]
     Indication: LOWER RESPIRATORY TRACT INFECTION
     Route: 048
     Dates: start: 20110107, end: 20110113
  2. AMIODARONE [Interacting]
     Indication: ATRIAL FIBRILLATION
     Route: 048
     Dates: start: 20100106, end: 20100113
  3. TAMIFLU [Interacting]
     Indication: H1N1 INFLUENZA
     Route: 048
     Dates: start: 20110111, end: 20110117

REACTIONS (5)
  - TORSADE DE POINTES [None]
  - GLOMERULAR FILTRATION RATE DECREASED [None]
  - ELECTROCARDIOGRAM QT PROLONGED [None]
  - VENTRICULAR TACHYCARDIA [None]
  - DRUG INTERACTION [None]
